FAERS Safety Report 21258400 (Version 1)
Quarter: 2022Q3

REPORT INFORMATION
  Report Type: Spontaneous
  Country: JP (occurrence: JP)
  Receive Date: 20220826
  Receipt Date: 20220826
  Transmission Date: 20221027
  Serious: Yes (Hospitalization, Other)
  Sender: FDA-Public Use
  Company Number: JP-Axellia-004408

PATIENT
  Age: 37 Year
  Sex: Female

DRUGS (4)
  1. VANCOMYCIN [Interacting]
     Active Substance: VANCOMYCIN
     Indication: Cellulitis staphylococcal
     Dosage: 2-3  G/DAY
  2. PIPERACILLIN AND TAZOBACTAM [Interacting]
     Active Substance: PIPERACILLIN SODIUM\TAZOBACTAM SODIUM
     Indication: Cellulitis staphylococcal
  3. CEFEPIME [Concomitant]
     Active Substance: CEFEPIME HYDROCHLORIDE
     Indication: Cellulitis staphylococcal
     Dosage: 6 G/ DAY
     Route: 048
  4. VANCOMYCIN [Interacting]
     Active Substance: VANCOMYCIN
     Indication: Cellulitis staphylococcal
     Dosage: 1.5 G/DAY AND INCREASED TO 2 GRAM PER DAY

REACTIONS (4)
  - Acute kidney injury [Recovered/Resolved]
  - Drug interaction [Unknown]
  - Drug level increased [Unknown]
  - Rash [Recovered/Resolved]
